FAERS Safety Report 4482585-2 (Version None)
Quarter: 2004Q4

REPORT INFORMATION
  Report Type: 
  Country: None (occurrence: None)
  Receive Date: 20041022
  Receipt Date: 20030930
  Transmission Date: 20050328
  Serious: Yes (Death)
  Sender: FDA-Public Use
  Company Number: BE-JNJFOC-20030805302

PATIENT
  Age: 57 Year
  Sex: Female

DRUGS (6)
  1. CISAPRIDE [Suspect]
     Route: 049
  2. CISAPRIDE [Suspect]
     Route: 049
  3. DURAGESIC [Concomitant]
  4. NEXIUM [Concomitant]
  5. PROVERA [Concomitant]
  6. NEO-RECORMON [Concomitant]
     Route: 065

REACTIONS (1)
  - DEATH [None]
